FAERS Safety Report 4521048-2 (Version None)
Quarter: 2004Q4

REPORT INFORMATION
  Report Type: 
  Country: None (occurrence: None)
  Receive Date: 20041206
  Receipt Date: 20041123
  Transmission Date: 20050328
  Serious: Yes (Life-Threatening)
  Sender: FDA-Public Use
  Company Number: ENT 2004-0171

PATIENT
  Age: 69 Year
  Sex: Male

DRUGS (2)
  1. COMTAN [Suspect]
     Dosage: 800 MG (200 MG, 4 IN 1 D), ORAL
     Route: 048
  2. STABLON [Concomitant]

REACTIONS (6)
  - COGNITIVE DISORDER [None]
  - CONVULSION [None]
  - DEHYDRATION [None]
  - HYPOGLYCAEMIA [None]
  - SOMNOLENCE [None]
  - STATUS EPILEPTICUS [None]
